FAERS Safety Report 7515865-4 (Version None)
Quarter: 2011Q2

REPORT INFORMATION
  Report Type: 
  Country: None (occurrence: None)
  Receive Date: 20110520
  Receipt Date: 20110509
  Transmission Date: 20111010
  Serious: Yes (Death)
  Sender: FDA-Public Use
  Company Number: UTC-006652

PATIENT
  Age: 56 Year
  Sex: Female
  Weight: 63.6 kg

DRUGS (4)
  1. REMODULIN [Suspect]
     Indication: PULMONARY ARTERIAL HYPERTENSION
     Dosage: 144 UG/KG (0.1 UG/KG,1 IN 1 MIN), INTRAVENOUS
     Route: 042
     Dates: start: 20101001
  2. REVATIO [Concomitant]
  3. COUMADIN [Concomitant]
  4. DIURETICS (DIURETICS) [Concomitant]

REACTIONS (2)
  - PAIN IN EXTREMITY [None]
  - RIGHT VENTRICULAR FAILURE [None]
